FAERS Safety Report 8928626 (Version 2)
Quarter: 2013Q1

REPORT INFORMATION
  Report Type: Spontaneous
  Country: JP (occurrence: JP)
  Receive Date: 20121128
  Receipt Date: 20130102
  Transmission Date: 20140127
  Serious: No
  Sender: FDA-Public Use
  Company Number: JP-ASTELLAS-2012JP011048

PATIENT
  Age: 91 Year
  Sex: Female

DRUGS (7)
  1. BETANIS [Suspect]
     Indication: HYPERTONIC BLADDER
     Dosage: 50 MG, UID/QD
     Route: 048
     Dates: start: 20121114
  2. CELECOX [Suspect]
     Dosage: 100 MG, UID/QD
     Route: 048
  3. ADALAT [Concomitant]
     Route: 048
  4. GASMOTIN [Concomitant]
     Route: 048
  5. REBAMIPIDE [Concomitant]
     Route: 065
  6. MAGMITT [Concomitant]
     Route: 048
  7. BENET OR BONALON [Concomitant]
     Route: 065

REACTIONS (1)
  - No adverse event [Unknown]
